FAERS Safety Report 7410809-8 (Version None)
Quarter: 2011Q2

REPORT INFORMATION
  Report Type: 
  Country: None (occurrence: None)
  Receive Date: 20110413
  Receipt Date: 20110406
  Transmission Date: 20111010
  Serious: No
  Sender: FDA-Public Use
  Company Number: US-PFIZER INC-2011076411

PATIENT
  Age: 52 Year
  Sex: Female

DRUGS (3)
  1. LIPITOR [Suspect]
     Dosage: 10 MG, UNK
  2. CRESTOR [Suspect]
     Dosage: UNK
  3. SIMVASTATIN [Suspect]
     Dosage: UNK

REACTIONS (4)
  - MUSCLE SPASMS [None]
  - MYALGIA [None]
  - PAIN [None]
  - HEPATIC ENZYME INCREASED [None]
